FAERS Safety Report 19292777 (Version 1)
Quarter: 2021Q2

REPORT INFORMATION
  Report Type: Spontaneous
  Country: US (occurrence: US)
  Receive Date: 20210521
  Receipt Date: 20210521
  Transmission Date: 20210717
  Serious: Yes (Disabling)
  Sender: FDA-Public Use
  Company Number: None

PATIENT
  Age: 57 Year
  Sex: Male
  Weight: 101.25 kg

DRUGS (6)
  1. OTEZLA [Suspect]
     Active Substance: APREMILAST
     Indication: PSORIASIS
     Dosage: QUANTITY:1 TABLET(S);?
     Route: 048
     Dates: start: 20190401
  2. TRIAMETERENE? HCCTZ [Concomitant]
  3. FLUTICASONE NASAL SPRAY [Concomitant]
     Active Substance: FLUTICASONE
  4. LORATADINE. [Concomitant]
     Active Substance: LORATADINE
  5. BABY ASPIIRIN [Concomitant]
  6. ATORVASTATIN [Concomitant]
     Active Substance: ATORVASTATIN

REACTIONS (6)
  - Therapeutic product effect decreased [None]
  - Arthralgia [None]
  - Psoriasis [None]
  - Diarrhoea [None]
  - Back pain [None]
  - Gastrointestinal disorder [None]

NARRATIVE: CASE EVENT DATE: 20210520
